FAERS Safety Report 15947608 (Version 3)
Quarter: 2019Q2

REPORT INFORMATION
  Report Type: Spontaneous
  Country: US (occurrence: US)
  Receive Date: 20190211
  Receipt Date: 20190610
  Transmission Date: 20190711
  Serious: No
  Sender: FDA-Public Use
  Company Number: US-PFIZER INC-2019050833

PATIENT
  Age: 70 Year
  Sex: Female

DRUGS (2)
  1. ADVIL LIQUI-GELS [Suspect]
     Active Substance: IBUPROFEN
     Indication: PAIN
     Dosage: UNK
  2. ADVIL LIQUI-GELS [Suspect]
     Active Substance: IBUPROFEN
     Indication: CERVICAL RADICULOPATHY
     Dosage: 1 DF, 4X/DAY (2 WK PERIODS)
     Dates: start: 201902, end: 201903

REACTIONS (1)
  - Drug ineffective [Not Recovered/Not Resolved]
